FAERS Safety Report 14170711 (Version 2)
Quarter: 2017Q4

REPORT INFORMATION
  Report Type: Spontaneous
  Country: US (occurrence: US)
  Receive Date: 20171108
  Receipt Date: 20171113
  Transmission Date: 20180321
  Serious: Yes (Hospitalization, Other)
  Sender: FDA-Public Use
  Company Number: US-PFIZER INC-2017479880

PATIENT
  Age: 56 Year
  Sex: Female
  Weight: 70 kg

DRUGS (2)
  1. KEFLEX [Suspect]
     Active Substance: CEPHALEXIN
     Indication: OROPHARYNGEAL PAIN
     Dosage: 50 MG, UNK
     Route: 048
     Dates: start: 20171030, end: 20171030
  2. CHILDRENS ROBITUSSIN COUGH AND CHEST CONGESTION DM [Suspect]
     Active Substance: DEXTROMETHORPHAN HYDROBROMIDE\GUAIFENESIN
     Indication: OROPHARYNGEAL PAIN
     Dosage: 5 ML, UNK
     Route: 048
     Dates: start: 20171030, end: 20171030

REACTIONS (9)
  - Throat tightness [Unknown]
  - Platelet count decreased [Unknown]
  - Anaphylactic shock [Recovered/Resolved]
  - Malaise [Not Recovered/Not Resolved]
  - Headache [Recovering/Resolving]
  - Pruritus [Unknown]
  - Pneumonia [Unknown]
  - Asthenia [Not Recovered/Not Resolved]
  - Fall [Unknown]

NARRATIVE: CASE EVENT DATE: 20171030
